FAERS Safety Report 5287595-3 (Version None)
Quarter: 2007Q1

REPORT INFORMATION
  Report Type: 
  Country: None (occurrence: None)
  Receive Date: 20070126
  Receipt Date: 20050720
  Transmission Date: 20070707
  Serious: No
  Sender: FDA-Public Use
  Company Number: 2006CT001136

PATIENT
  Age: 11 Year
  Sex: Female
  Weight: 39.4 kg

DRUGS (2)
  1. VENTAVIS [Suspect]
     Indication: PULMONARY HYPERTENSION
     Dosage: SEE IMAGE
     Route: 055
     Dates: start: 20050720, end: 20050720
  2. VENTAVIS [Suspect]
     Indication: PULMONARY HYPERTENSION
     Dosage: SEE IMAGE
     Route: 055
     Dates: start: 20050720, end: 20050720

REACTIONS (4)
  - FORCED EXPIRATORY VOLUME DECREASED [None]
  - OXYGEN SATURATION DECREASED [None]
  - PULMONARY ARTERIAL PRESSURE INCREASED [None]
  - WHEEZING [None]
